FAERS Safety Report 15644426 (Version 3)
Quarter: 2019Q3

REPORT INFORMATION
  Report Type: Spontaneous
  Country: US (occurrence: US)
  Receive Date: 20181121
  Receipt Date: 20190923
  Transmission Date: 20191004
  Serious: No
  Sender: FDA-Public Use
  Company Number: US-ACTELION-A-NJ2018-182109

PATIENT
  Sex: Female
  Weight: 58.05 kg

DRUGS (5)
  1. WARFARIN [Concomitant]
     Active Substance: WARFARIN
  2. VENTAVIS [Concomitant]
     Active Substance: ILOPROST
     Indication: PULMONARY ARTERIAL HYPERTENSION
     Route: 055
  3. ADCIRCA [Concomitant]
     Active Substance: TADALAFIL
  4. OPSUMIT [Suspect]
     Active Substance: MACITENTAN
     Indication: PULMONARY ARTERIAL HYPERTENSION
     Dosage: 10 MG, QD
     Route: 048
     Dates: start: 20141013
  5. TADALAFIL. [Concomitant]
     Active Substance: TADALAFIL

REACTIONS (6)
  - Plantar fasciitis [Unknown]
  - Bursitis [Unknown]
  - Feeling abnormal [Unknown]
  - Hypercholesterolaemia [Unknown]
  - Oedema [Unknown]
  - Dyspnoea exertional [Unknown]
